FAERS Safety Report 8599521-X (Version None)
Quarter: 2012Q3

REPORT INFORMATION
  Report Type: 
  Country: None (occurrence: None)
  Receive Date: 20120816
  Receipt Date: 20120717
  Transmission Date: 20120928
  Serious: No
  Sender: FDA-Public Use
  Company Number: US-ALLERGAN-1209906US

PATIENT
  Age: 35 Year
  Sex: Female

DRUGS (2)
  1. LASTACAFT [Suspect]
     Dosage: SINGLE ADMINISTRATION
     Route: 047
     Dates: start: 20120501, end: 20120501
  2. LASTACAFT [Suspect]
     Indication: SEASONAL ALLERGY
     Dosage: SINGLE ADMINISTRATION
     Route: 047
     Dates: start: 20120714, end: 20120714

REACTIONS (5)
  - CONJUNCTIVITIS [None]
  - EYE PAIN [None]
  - CONJUNCTIVAL HYPERAEMIA [None]
  - CHEMICAL BURNS OF EYE [None]
  - OCULAR HYPERAEMIA [None]
